FAERS Safety Report 13069042 (Version 1)
Quarter: 2016Q4

REPORT INFORMATION
  Report Type: Spontaneous
  Country: IT (occurrence: IT)
  Receive Date: 20161228
  Receipt Date: 20161228
  Transmission Date: 20170207
  Serious: Yes (Hospitalization)
  Sender: FDA-Public Use
  Company Number: IT-ASTRAZENECA-2016SF35403

PATIENT
  Age: 65 Year
  Sex: Male

DRUGS (9)
  1. GLUCOPHAGE [Suspect]
     Active Substance: METFORMIN HYDROCHLORIDE
     Indication: TYPE 2 DIABETES MELLITUS
     Route: 048
  2. ESOPRAL [Concomitant]
     Active Substance: ESOMEPRAZOLE MAGNESIUM
     Indication: OESOPHAGITIS
     Dosage: 20.0MG UNKNOWN
     Route: 048
  3. EUTIMIL [Suspect]
     Active Substance: PAROXETINE HYDROCHLORIDE
     Indication: DEPRESSION
     Route: 048
     Dates: start: 20160715
  4. EUTIMIL [Suspect]
     Active Substance: PAROXETINE HYDROCHLORIDE
     Indication: DEPRESSION
     Dosage: SEREUPIN
     Route: 065
  5. MUSCORIL [Concomitant]
     Active Substance: THIOCOLCHICOSIDE
     Indication: TINNITUS
     Dosage: 4.0MG UNKNOWN
     Route: 048
  6. STILIDEN [Concomitant]
     Active Substance: PAROXETINE HYDROCHLORIDE
     Indication: DEPRESSION
     Dosage: 10 MG/ML ORAL UNKNOWN
     Route: 048
     Dates: start: 20160715
  7. CIPRALEX [Suspect]
     Active Substance: ESCITALOPRAM OXALATE
     Indication: DEPRESSION
     Route: 065
     Dates: start: 20160715
  8. DIAMOX SEQUELS [Concomitant]
     Active Substance: ACETAZOLAMIDE
     Indication: TINNITUS
     Dosage: 250.0MG UNKNOWN
     Route: 048
  9. CRESTOR [Suspect]
     Active Substance: ROSUVASTATIN CALCIUM
     Indication: HYPERCHOLESTEROLAEMIA
     Route: 048

REACTIONS (2)
  - Tinnitus [Not Recovered/Not Resolved]
  - Immune thrombocytopenic purpura [Recovered/Resolved with Sequelae]

NARRATIVE: CASE EVENT DATE: 20160727
